FAERS Safety Report 7998214-7 (Version None)
Quarter: 2011Q4

REPORT INFORMATION
  Report Type: 
  Country: None (occurrence: None)
  Receive Date: 20111221
  Receipt Date: 20110415
  Transmission Date: 20120403
  Serious: No
  Sender: FDA-Public Use
  Company Number: US-GLAXOSMITHKLINE-A0923193A

PATIENT
  Age: 65 Year
  Sex: Male

DRUGS (4)
  1. AVODART [Concomitant]
  2. FLOMAX [Concomitant]
  3. SIMVASTATIN [Concomitant]
  4. LOVAZA [Suspect]
     Indication: BLOOD TRIGLYCERIDES INCREASED
     Dosage: 2CAP TWICE PER DAY
     Route: 048
     Dates: start: 20100801

REACTIONS (2)
  - PRODUCT QUALITY ISSUE [None]
  - ABDOMINAL DISCOMFORT [None]
